FAERS Safety Report 20893226 (Version 3)
Quarter: 2022Q3

REPORT INFORMATION
  Report Type: Spontaneous
  Country: US (occurrence: US)
  Receive Date: 20220531
  Receipt Date: 20220913
  Transmission Date: 20221027
  Serious: Yes (Other)
  Sender: FDA-Public Use
  Company Number: US-SA-SAC20220527001730

PATIENT
  Age: 50 Year
  Sex: Male

DRUGS (4)
  1. DUPIXENT [Suspect]
     Active Substance: DUPILUMAB
     Indication: Crohn^s disease
     Dosage: 300 MG, QOW
     Route: 058
     Dates: start: 20191106
  2. DUPIXENT [Suspect]
     Active Substance: DUPILUMAB
     Indication: Asthma
  3. HUMIRA [Suspect]
     Active Substance: ADALIMUMAB
  4. STELARA [Concomitant]
     Active Substance: USTEKINUMAB

REACTIONS (4)
  - Crohn^s disease [Unknown]
  - Abdominal pain [Recovered/Resolved]
  - Drug ineffective [Unknown]
  - Product use in unapproved indication [Unknown]

NARRATIVE: CASE EVENT DATE: 20191106
